FAERS Safety Report 8132786-7 (Version None)
Quarter: 2012Q1

REPORT INFORMATION
  Report Type: 
  Country: None (occurrence: None)
  Receive Date: 20120213
  Receipt Date: 20120208
  Transmission Date: 20120608
  Serious: Yes (Hospitalization, Other)
  Sender: FDA-Public Use
  Company Number: US-MERCK-1112USA01238

PATIENT
  Age: 67 Year
  Sex: Female

DRUGS (7)
  1. NEUROTIN (ACETYLCARNITINE HYDROCHLORIDE) [Concomitant]
     Indication: RESTLESS LEGS SYNDROME
     Route: 048
     Dates: start: 20000101
  2. LEVOTHROID [Concomitant]
     Indication: THYROID DISORDER
     Route: 048
     Dates: start: 20000101
  3. [THERAPY UNSPECIFIED] [Concomitant]
     Indication: BLOOD PRESSURE
     Route: 048
     Dates: start: 20000101
  4. PANTOPRAZOLE [Concomitant]
     Indication: GASTRIC DISORDER
     Route: 048
  5. SINGULAIR [Concomitant]
     Indication: HYPERSENSITIVITY
     Route: 048
     Dates: start: 20000101
  6. FEXOFENADINE HYDROCHLORIDE [Concomitant]
     Indication: SINUS DISORDER
     Route: 048
     Dates: start: 20000101
  7. FOSAMAX [Suspect]
     Indication: OSTEOPOROSIS
     Route: 048
     Dates: start: 20010701, end: 20080129

REACTIONS (13)
  - CARPAL TUNNEL SYNDROME [None]
  - WRIST FRACTURE [None]
  - STITCH ABSCESS [None]
  - LIMB INJURY [None]
  - FEMUR FRACTURE [None]
  - HYPOAESTHESIA [None]
  - DEVICE FAILURE [None]
  - LIGAMENT SPRAIN [None]
  - PERIPROSTHETIC FRACTURE [None]
  - STAPHYLOCOCCAL INFECTION [None]
  - HIP FRACTURE [None]
  - PLATELET DISORDER [None]
  - ARTHRITIS [None]
